FAERS Safety Report 9632716 (Version 3)
Quarter: 2014Q2

REPORT INFORMATION
  Report Type: Report from Study
  Country: BR (occurrence: BR)
  Receive Date: 20131018
  Receipt Date: 20140605
  Transmission Date: 20141212
  Serious: Yes (Death, Hospitalization)
  Sender: FDA-Public Use
  Company Number: BR-INCYTE CORPORATION-2013IN002404

PATIENT
  Age: 55 Year
  Sex: Male
  Weight: 69 kg

DRUGS (5)
  1. INC424 [Suspect]
     Indication: MYELOFIBROSIS
     Dosage: 20 MG, BID
     Route: 048
     Dates: start: 20130513, end: 20130820
  2. PREDNISONE [Concomitant]
     Indication: RENAL FAILURE ACUTE
     Dosage: 1 MG/KG, QD
     Dates: start: 20130816
  3. PREDNISONE [Concomitant]
     Indication: TUBULOINTERSTITIAL NEPHRITIS
  4. OMEPRAZOLE [Concomitant]
     Indication: GASTRITIS
     Dosage: UNK
  5. FUROSEMIDE [Concomitant]
     Indication: ASCITES
     Dosage: UNK

REACTIONS (2)
  - Neurocryptococcosis [Fatal]
  - Peritoneal tuberculosis [Fatal]
